FAERS Safety Report 12531389 (Version 2)
Quarter: 2016Q3

REPORT INFORMATION
  Report Type: Spontaneous
  Country: JP (occurrence: JP)
  Receive Date: 20160706
  Receipt Date: 20160826
  Transmission Date: 20161109
  Serious: No
  Sender: FDA-Public Use
  Company Number: JP-ASTRAZENECA-2016SE72021

PATIENT
  Age: 63 Year
  Sex: Female
  Weight: 20.4 kg

DRUGS (9)
  1. SYMBICORT [Suspect]
     Active Substance: BUDESONIDE\FORMOTEROL FUMARATE DIHYDRATE
     Indication: ASTHMA
     Dosage: 2 DF, TWO  TIMES A DAY
     Route: 055
  2. CISDYNE [Concomitant]
     Active Substance: CARBOCYSTEINE
     Indication: ASTHMA
     Dates: start: 20160506
  3. METHYLPREDNISOLONE. [Concomitant]
     Active Substance: METHYLPREDNISOLONE
     Indication: ASTHMA
     Dates: start: 20160506
  4. AMINOPHYLLINE HYDRATE [Concomitant]
     Indication: ASTHMA
     Dates: start: 20160505
  5. AMBROXOL HYDROCHLORIDE [Concomitant]
     Active Substance: AMBROXOL HYDROCHLORIDE
     Indication: ASTHMA
     Dates: start: 20160506
  6. SYMBICORT [Suspect]
     Active Substance: BUDESONIDE\FORMOTEROL FUMARATE DIHYDRATE
     Indication: ASTHMA
     Dosage: 4 DF, FOUR TIMES A DAY
     Route: 055
     Dates: start: 20160506, end: 20160628
  7. CALONAL [Concomitant]
     Active Substance: ACETAMINOPHEN
     Indication: ASTHMA
     Dates: start: 20160506
  8. SINGULAIR [Concomitant]
     Active Substance: MONTELUKAST SODIUM
     Indication: ASTHMA
     Route: 048
     Dates: start: 20160506
  9. SOLU-CORTEF [Concomitant]
     Active Substance: HYDROCORTISONE SODIUM SUCCINATE
     Indication: ASTHMA
     Dates: start: 20160505

REACTIONS (2)
  - Muscular weakness [Recovered/Resolved]
  - Nasal polyps [Unknown]

NARRATIVE: CASE EVENT DATE: 20160506
